FAERS Safety Report 23876396 (Version 1)
Quarter: 2024Q2

REPORT INFORMATION
  Report Type: Spontaneous
  Country: BR (occurrence: BR)
  Receive Date: 20240520
  Receipt Date: 20240520
  Transmission Date: 20240716
  Serious: Yes (Hospitalization)
  Sender: FDA-Public Use
  Company Number: BR-PFIZER INC-202400135739

PATIENT
  Age: 67 Year
  Sex: Female

DRUGS (1)
  1. RITUXIMAB [Suspect]
     Active Substance: RITUXIMAB
     Indication: Rheumatoid arthritis
     Dosage: 500 MG/50 ML
     Dates: start: 20231031, end: 20231031

REACTIONS (2)
  - Throat irritation [Recovered/Resolved]
  - Throat clearing [Recovered/Resolved]

NARRATIVE: CASE EVENT DATE: 20231031
